FAERS Safety Report 25660100 (Version 1)
Quarter: 2025Q3

REPORT INFORMATION
  Report Type: Spontaneous
  Country: CA (occurrence: CA)
  Receive Date: 20250808
  Receipt Date: 20250808
  Transmission Date: 20251020
  Serious: Yes (Hospitalization, Other)
  Sender: PFIZER
  Company Number: CA-PFIZER INC-202500157648

PATIENT
  Age: 91 Year
  Sex: Male

DRUGS (12)
  1. VYNDAQEL [Suspect]
     Active Substance: TAFAMIDIS MEGLUMINE
     Indication: Cardiac amyloidosis
     Dosage: 80 MG, 1X/DAY
     Route: 048
     Dates: start: 20210209
  2. ASPIRIN [Concomitant]
     Active Substance: ASPIRIN
     Dosage: UNK UNK, DAILY  (80 DIE)
  3. EDOXABAN [Concomitant]
     Active Substance: EDOXABAN
     Dosage: UNK UNK, DAILY (DIE)
  4. LASIX [Concomitant]
     Active Substance: FUROSEMIDE
  5. LASIX [Concomitant]
     Active Substance: FUROSEMIDE
     Dates: start: 2025
  6. LYRICA [Concomitant]
     Active Substance: PREGABALIN
     Dosage: UNK, 3X/DAY (50 TID)
  7. METOPROLOL [Concomitant]
     Active Substance: METOPROLOL
     Dosage: UNK, 2X/DAY (12.5 BID)
  8. PROSCAR [Concomitant]
     Active Substance: FINASTERIDE
  9. SPIRO [Concomitant]
     Dosage: UNK UNK, DAILY (12.5 DIE)
  10. SPIRO [Concomitant]
     Dates: start: 2025
  11. VALSARTAN [Concomitant]
     Active Substance: VALSARTAN
  12. CHOLECALCIFEROL [Concomitant]
     Active Substance: CHOLECALCIFEROL

REACTIONS (19)
  - Atrial fibrillation [Unknown]
  - Diffuse large B-cell lymphoma [Unknown]
  - Pneumonia [Unknown]
  - Cardiac failure [Unknown]
  - Renal impairment [Unknown]
  - Arthritis [Unknown]
  - Gout [Unknown]
  - Epistaxis [Unknown]
  - Dyspnoea [Unknown]
  - Fatigue [Unknown]
  - Decreased appetite [Unknown]
  - Balance disorder [Unknown]
  - Pain [Unknown]
  - Blood pressure diastolic decreased [Unknown]
  - Dysgeusia [Unknown]
  - Fall [Unknown]
  - Atrial flutter [Unknown]
  - Weight decreased [Unknown]
  - General physical health deterioration [Unknown]

NARRATIVE: CASE EVENT DATE: 20250101
